FAERS Safety Report 9099646 (Version 2)
Quarter: 2013Q1

REPORT INFORMATION
  Report Type: Report from Study
  Country: US (occurrence: US)
  Receive Date: 20130213
  Receipt Date: 20130329
  Transmission Date: 20140127
  Serious: No
  Sender: FDA-Public Use
  Company Number: US-VERTEX PHARMACEUTICALS INC.-2013-001911

PATIENT
  Sex: Female

DRUGS (8)
  1. VX-950 (TELAPREVIR) [Suspect]
     Indication: HEPATITIS C
     Dosage: 750 MG, TID
     Route: 048
  2. PEGASYS [Suspect]
     Indication: HEPATITIS C
     Dosage: 180 ?G/M
  3. RIBAPAK [Suspect]
     Indication: HEPATITIS C
     Dosage: 800 , QD
  4. LISINOPRIL [Concomitant]
     Dosage: 20 MG
  5. WELLBUTRIN [Concomitant]
     Dosage: 100 MG
  6. CALCIUM D [Concomitant]
  7. AMBIEN CR [Concomitant]
     Dosage: 12.5 MG
  8. CLARITIN [Concomitant]
     Dosage: 10 MG

REACTIONS (3)
  - Headache [Unknown]
  - Fatigue [Unknown]
  - Nausea [Unknown]
